FAERS Safety Report 9262785 (Version 1)
Quarter: 2013Q2

REPORT INFORMATION
  Report Type: Spontaneous
  Country: US (occurrence: None)
  Receive Date: 20130426
  Receipt Date: 20130426
  Transmission Date: 20140414
  Serious: No
  Sender: FDA-Public Use
  Company Number: None

PATIENT
  Age: 53 None
  Sex: Male
  Weight: 100 kg

DRUGS (1)
  1. OXYMORPHONE [Suspect]
     Indication: PAIN
     Route: 048
     Dates: start: 20130102, end: 20130119

REACTIONS (2)
  - Nausea [None]
  - Vomiting [None]
